FAERS Safety Report 8023026-8 (Version None)
Quarter: 2012Q1

REPORT INFORMATION
  Report Type: 
  Country: None (occurrence: None)
  Receive Date: 20120104
  Receipt Date: 20120103
  Transmission Date: 20120608
  Serious: Yes (Hospitalization, Other)
  Sender: FDA-Public Use
  Company Number: PHEH2006US10883

PATIENT
  Sex: Male

DRUGS (27)
  1. CEPHALEXIN [Concomitant]
     Dosage: 500 MG, UNK
  2. ACETAMINOPHEN AND TRAMADOL HCL [Concomitant]
  3. ASPIRIN [Concomitant]
  4. THALIDOMIDE [Concomitant]
  5. HYDROCHLOROTHIAZIDE [Concomitant]
  6. AMLODIPINE [Concomitant]
  7. DURAGESIC-100 [Concomitant]
  8. DOCUSATE [Concomitant]
  9. METHADONE HCL [Concomitant]
  10. NORVASC [Concomitant]
     Dosage: 10 MG, UNK
  11. LORTAB [Concomitant]
     Dosage: 5/500, UKN, UNK
  12. CIPROFLOXACIN [Concomitant]
  13. ANUSOL PLUS [Concomitant]
     Indication: HAEMORRHOIDS
  14. TEMSIROLIMUS [Concomitant]
  15. SENNA [Concomitant]
  16. TORADOL [Concomitant]
  17. ZOLPIDEM [Concomitant]
  18. MARINOL [Concomitant]
  19. AMBIEN [Concomitant]
  20. ZOMETA [Suspect]
  21. HYDROCODONE BITARTRATE AND ACETAMINOPHEN [Concomitant]
  22. POTASSIUM CHLORIDE [Concomitant]
  23. BUTALBITAL ACETAMINOPHEN AND CAFFEINE [Concomitant]
  24. AMOXICILLIN AND CLAVULANATE POTASSIUM [Concomitant]
  25. LEVAQUIN [Concomitant]
  26. MS CONTIN [Concomitant]
  27. AMPICILLIN [Concomitant]

REACTIONS (42)
  - SEPSIS [None]
  - DYSPNOEA [None]
  - LYMPHADENOPATHY MEDIASTINAL [None]
  - METASTASES TO LUNG [None]
  - PNEUMONIA [None]
  - DECREASED ACTIVITY [None]
  - FLUID RETENTION [None]
  - OEDEMA [None]
  - ABDOMINAL PAIN [None]
  - METASTASES TO CENTRAL NERVOUS SYSTEM [None]
  - ORAL NEOPLASM [None]
  - PLEURAL EFFUSION [None]
  - PATHOLOGICAL FRACTURE [None]
  - METASTASES TO BONE [None]
  - HAEMORRHOIDS [None]
  - SWELLING [None]
  - RESPIRATORY FAILURE [None]
  - HAEMOPTYSIS [None]
  - HYPERTRIGLYCERIDAEMIA [None]
  - JOINT DISLOCATION [None]
  - CHEST PAIN [None]
  - INJURY [None]
  - PAIN [None]
  - OSTEITIS [None]
  - EXOSTOSIS [None]
  - FATIGUE [None]
  - OSTEOARTHRITIS [None]
  - PYREXIA [None]
  - LYMPHADENOPATHY [None]
  - PAIN IN EXTREMITY [None]
  - OSTEONECROSIS OF JAW [None]
  - ANXIETY [None]
  - RECTAL HAEMORRHAGE [None]
  - ARTHRALGIA [None]
  - RESPIRATORY TRACT INFECTION [None]
  - ORAL INFECTION [None]
  - PURULENT DISCHARGE [None]
  - ATELECTASIS [None]
  - ANAEMIA [None]
  - CONSTIPATION [None]
  - RENAL FAILURE CHRONIC [None]
  - SINUS BRADYCARDIA [None]
